FAERS Safety Report 9671608 (Version 2)
Quarter: 2013Q4

REPORT INFORMATION
  Report Type: Spontaneous
  Country: BR (occurrence: BR)
  Receive Date: 20131106
  Receipt Date: 20131106
  Transmission Date: 20140711
  Serious: Yes (Other)
  Sender: FDA-Public Use
  Company Number: BR-AMGEN-BRASP2013075805

PATIENT
  Age: 65 Year
  Sex: Female
  Weight: 78 kg

DRUGS (10)
  1. ENBREL [Suspect]
     Indication: RHEUMATOID ARTHRITIS
     Dosage: 50 MG, WEEKLY
     Route: 065
     Dates: start: 20130814
  2. INSULIN REGULAR HM [Concomitant]
     Dosage: ^20^ IN THE MORNING, ^15^ IN THE AFTERNOON
     Dates: start: 2012
  3. INSULIN NPH                        /01223208/ [Concomitant]
     Dosage: ^45^ IN THE MORNING, ^25^ IN THE AFTERNOON, ^30^ AT NIGHT
     Dates: start: 2012
  4. SIMVASTATIN [Concomitant]
     Dosage: 1 TABLET (20 MG), DAILY
     Dates: start: 2011
  5. OMEPRAZOLE [Concomitant]
     Dosage: 1 TABLET (20 MG), DAILY
     Dates: start: 2011
  6. METFORMIN [Concomitant]
     Dosage: 3 TABLETS (450 MG), DAILY
     Dates: start: 2011
  7. LOSARTAN [Concomitant]
     Dosage: 2 TABLETS (TOTAL OF 100 MG), DAILY
     Dates: start: 2012
  8. ATENOLOL [Concomitant]
     Dosage: 1 TABLET (25 MG), DAILY
     Dates: start: 2012
  9. BROMOPRIDE [Concomitant]
     Dosage: 2 TABLETS (TOTAL OF 20 MG), DAILY
     Dates: start: 2012
  10. AAS [Concomitant]
     Dosage: 1 TABLET (10 MG), DAILY
     Dates: start: 2010

REACTIONS (4)
  - Hepatic neoplasm [Unknown]
  - Injection site swelling [Unknown]
  - Injection site erythema [Unknown]
  - Injection site warmth [Unknown]
